FAERS Safety Report 10336640 (Version 2)
Quarter: 2014Q3

REPORT INFORMATION
  Report Type: Spontaneous
  Country: US (occurrence: US)
  Receive Date: 20140723
  Receipt Date: 20140723
  Transmission Date: 20150326
  Serious: No
  Sender: FDA-Public Use
  Company Number: US-UNITED THERAPEUTICS-UTC-047217

PATIENT
  Sex: Female
  Weight: 77.11 kg

DRUGS (2)
  1. REVATIO [Concomitant]
     Active Substance: SILDENAFIL CITRATE
  2. REMODULIN [Suspect]
     Active Substance: TREPROSTINIL
     Dosage: 0.006 UG/KG/MIN
     Route: 041
     Dates: start: 20140315

REACTIONS (2)
  - Musculoskeletal discomfort [Unknown]
  - Pain [Unknown]

NARRATIVE: CASE EVENT DATE: 2014
